FAERS Safety Report 18923668 (Version 2)
Quarter: 2021Q2

REPORT INFORMATION
  Report Type: Spontaneous
  Country: IT (occurrence: IT)
  Receive Date: 20210222
  Receipt Date: 20210414
  Transmission Date: 20210717
  Serious: Yes (Hospitalization)
  Sender: FDA-Public Use
  Company Number: IT-PFIZER INC-2021135554

PATIENT
  Age: 58 Year
  Sex: Female

DRUGS (4)
  1. QUETIAPINE. [Suspect]
     Active Substance: QUETIAPINE
     Indication: DEPRESSION
     Dosage: 1 DF, SINGLE
     Route: 048
     Dates: start: 20190613, end: 20190613
  2. FLUOXETINE [Concomitant]
     Active Substance: FLUOXETINE HYDROCHLORIDE
     Indication: DEPRESSION
     Dosage: 1 DF, 1X/DAY
     Route: 048
  3. TAVOR (LORAZEPAM) [Suspect]
     Active Substance: LORAZEPAM
     Indication: DEPRESSION
     Dosage: 1 DF, SINGLE
     Route: 048
     Dates: start: 20190613, end: 20190613
  4. AMISULPRIDE [Concomitant]
     Active Substance: AMISULPRIDE
     Indication: DEPRESSION
     Dosage: 1 DF, 1X/DAY
     Route: 048

REACTIONS (6)
  - Drug abuse [Recovering/Resolving]
  - Sopor [Recovering/Resolving]
  - Hypoxia [Recovering/Resolving]
  - Miosis [Recovering/Resolving]
  - Loss of consciousness [Recovering/Resolving]
  - Snoring [Recovering/Resolving]

NARRATIVE: CASE EVENT DATE: 20190613
